FAERS Safety Report 9097868 (Version 4)
Quarter: 2014Q2

REPORT INFORMATION
  Report Type: Report from Study
  Country: GB (occurrence: GB)
  Receive Date: 20130212
  Receipt Date: 20140528
  Transmission Date: 20141212
  Serious: Yes (Hospitalization, Other)
  Sender: FDA-Public Use
  Company Number: GB-ROCHE-1190202

PATIENT
  Age: 89 Year
  Sex: Female
  Weight: 54 kg

DRUGS (6)
  1. RANIBIZUMAB [Suspect]
     Indication: CONFUSIONAL STATE
     Route: 050
     Dates: start: 20130201, end: 20130201
  2. ASPIRIN [Concomitant]
     Indication: TRANSIENT ISCHAEMIC ATTACK
     Route: 065
     Dates: start: 2007
  3. DIPYRIDAMOLE [Concomitant]
     Route: 065
     Dates: start: 2011
  4. SIMVASTATIN [Concomitant]
     Indication: HYPERCHOLESTEROLAEMIA
     Route: 065
     Dates: start: 2007
  5. ALENDRONIC ACID [Concomitant]
     Indication: OSTEOPOROSIS
  6. CO-AMOXICLAV [Concomitant]
     Indication: URINARY TRACT INFECTION
     Route: 065
     Dates: start: 20120128

REACTIONS (3)
  - Confusional state [Recovered/Resolved]
  - Hallucination [Recovered/Resolved]
  - Pneumonia [Recovered/Resolved]
